FAERS Safety Report 6978036-6 (Version None)
Quarter: 2010Q3

REPORT INFORMATION
  Report Type: 
  Country: None (occurrence: None)
  Receive Date: 20100913
  Receipt Date: 20100830
  Transmission Date: 20110219
  Serious: Yes (Death)
  Sender: FDA-Public Use
  Company Number: SE-RANBAXY-2010RR-38017

PATIENT
  Age: 20 Year
  Sex: Female

DRUGS (5)
  1. CITALOPRAM HYDROBROMIDE [Suspect]
  2. DEXTROAMPHETAMINE AND AMPHETAMINE SALTS [Suspect]
  3. SODIUM OXYBATE [Suspect]
  4. SALYCILIC ACID [Suspect]
  5. COCAINE [Suspect]

REACTIONS (3)
  - DEATH [None]
  - DRUG ABUSE [None]
  - OVERDOSE [None]
